FAERS Safety Report 5340108-X (Version None)
Quarter: 2007Q2

REPORT INFORMATION
  Report Type: 
  Country: None (occurrence: None)
  Receive Date: 20070525
  Receipt Date: 20070525
  Transmission Date: 20071010
  Serious: Yes (Hospitalization)
  Sender: FDA-Public Use
  Company Number: None

PATIENT
  Age: 59 Year
  Sex: Male
  Weight: 60.782 kg

DRUGS (8)
  1. WARFARIN SODIUM [Suspect]
     Indication: HEART VALVE REPLACEMENT
     Dosage: 2.5 MG Q EVE PO
     Route: 048
  2. COREG [Concomitant]
  3. LASIX [Concomitant]
  4. PREVACID [Concomitant]
  5. CAPTOPRIL [Concomitant]
  6. TRICOR [Concomitant]
  7. POTASSIUM CHLORIDE [Concomitant]
  8. PROPOXYPHENE HYDROCHLORIDE [Concomitant]

REACTIONS (4)
  - ANAEMIA [None]
  - INTERNATIONAL NORMALISED RATIO INCREASED [None]
  - MALLORY-WEISS SYNDROME [None]
  - UPPER GASTROINTESTINAL HAEMORRHAGE [None]
